FAERS Safety Report 9617503 (Version 1)
Quarter: 2013Q4

REPORT INFORMATION
  Report Type: Spontaneous
  Country: BR (occurrence: BR)
  Receive Date: 20131011
  Receipt Date: 20131011
  Transmission Date: 20140711
  Serious: Yes (Hospitalization, Other)
  Sender: FDA-Public Use
  Company Number: BR-GLAXOSMITHKLINE-A1044979A

PATIENT
  Age: 81 Year
  Sex: Male
  Weight: 79 kg

DRUGS (3)
  1. AVODART [Suspect]
     Indication: BENIGN PROSTATIC HYPERPLASIA
     Dosage: .5MG PER DAY
     Route: 048
     Dates: start: 2007
  2. GLIFAGE [Suspect]
     Indication: PRODUCT USED FOR UNKNOWN INDICATION
     Dosage: 1TAB TWICE PER DAY
     Route: 048
     Dates: start: 2010
  3. LAMICTAL [Concomitant]
     Indication: CONVULSION
     Dosage: 1.5TAB TWICE PER DAY
     Route: 048
     Dates: start: 20130902, end: 20130919

REACTIONS (1)
  - Bradycardia [Recovered/Resolved]
